FAERS Safety Report 24680841 (Version 1)
Quarter: 2024Q4

REPORT INFORMATION
  Report Type: Spontaneous
  Country: CN (occurrence: CN)
  Receive Date: 20241129
  Receipt Date: 20241129
  Transmission Date: 20250115
  Serious: Yes (Other)
  Sender: ANI
  Company Number: CN-ANIPHARMA-2024-CN-000470

PATIENT
  Age: 41 Year
  Sex: Female

DRUGS (3)
  1. ANASTROZOLE [Suspect]
     Active Substance: ANASTROZOLE
     Indication: Endocrine neoplasm
     Dosage: 10 MILLIGRAM, QD
     Route: 048
     Dates: start: 20240807
  2. GOSERELIN [Suspect]
     Active Substance: GOSERELIN
     Dosage: 3.6 MILLIGRAM, QMONTH
     Route: 058
     Dates: start: 20240807
  3. DEVICE [Suspect]
     Active Substance: DEVICE

REACTIONS (1)
  - Platelet count decreased [Unknown]

NARRATIVE: CASE EVENT DATE: 20240827
